FAERS Safety Report 5463107-6 (Version None)
Quarter: 2007Q3

REPORT INFORMATION
  Report Type: 
  Country: None (occurrence: None)
  Receive Date: 20070918
  Receipt Date: 20070918
  Transmission Date: 20080115
  Serious: Yes (Other)
  Sender: FDA-Public Use
  Company Number: None

PATIENT
  Age: 31 Year
  Sex: Female
  Weight: 68.0396 kg

DRUGS (2)
  1. BUSPIRONE HCL [Suspect]
     Indication: ANXIETY
     Dosage: 15MG BID PO
     Route: 048
     Dates: start: 20070501, end: 20070801
  2. BUSPIRONE HCL [Suspect]
     Indication: DEPRESSION
     Dosage: 15MG BID PO
     Route: 048
     Dates: start: 20070501, end: 20070801

REACTIONS (11)
  - ABDOMINAL DISTENSION [None]
  - ANOREXIA [None]
  - BACK PAIN [None]
  - CHEST PAIN [None]
  - DIARRHOEA [None]
  - DRUG WITHDRAWAL SYNDROME [None]
  - DYSURIA [None]
  - FATIGUE [None]
  - HYPERHIDROSIS [None]
  - NAUSEA [None]
  - WEIGHT INCREASED [None]
